FAERS Safety Report 9958531 (Version 2)
Quarter: 2014Q2

REPORT INFORMATION
  Report Type: Spontaneous
  Country: US (occurrence: US)
  Receive Date: 20140305
  Receipt Date: 20140403
  Transmission Date: 20141212
  Serious: Yes (Hospitalization)
  Sender: FDA-Public Use
  Company Number: US-BRISTOL-MYERS SQUIBB COMPANY-20323176

PATIENT
  Sex: Female

DRUGS (1)
  1. BYDUREON [Suspect]

REACTIONS (2)
  - Renal transplant [Unknown]
  - Drug ineffective [Unknown]
